FAERS Safety Report 13738515 (Version 2)
Quarter: 2017Q4

REPORT INFORMATION
  Report Type: Report from Study
  Country: US (occurrence: US)
  Receive Date: 20170710
  Receipt Date: 20171012
  Transmission Date: 20180320
  Serious: No
  Sender: FDA-Public Use
  Company Number: US-SAOL THERAPEUTICS-2016SAO00400

PATIENT
  Age: 56 Year
  Sex: Female

DRUGS (22)
  1. COMPOUNDED BACLOFEN [Suspect]
     Active Substance: BACLOFEN
     Dosage: 200.3 ?G, \DAY
     Route: 037
     Dates: start: 20161013
  2. COMPOUNDED BACLOFEN [Suspect]
     Active Substance: BACLOFEN
     Dosage: 348.6 ?G, \DAY
     Route: 037
     Dates: start: 20161013
  3. COMPOUNDED BACLOFEN [Suspect]
     Active Substance: BACLOFEN
     Dosage: 300.07 ?G, \DAY
     Route: 037
     Dates: end: 20170720
  4. MORPHINE [Suspect]
     Active Substance: MORPHINE
     Dosage: 1.743 MG, \DAY
     Route: 037
     Dates: start: 20161013
  5. MORPHINE [Suspect]
     Active Substance: MORPHINE
     Dosage: 1.367 MG, \DAY
     Route: 037
  6. MORPHINE [Suspect]
     Active Substance: MORPHINE
     Dosage: 0.7249 MG, \DAY
     Route: 037
     Dates: start: 20160414, end: 20160714
  7. MORPHINE [Suspect]
     Active Substance: MORPHINE
     Dosage: 1.500 MG, \DAY
     Route: 037
     Dates: end: 20170720
  8. MORPHINE [Suspect]
     Active Substance: MORPHINE
     Dosage: 1.620 MG, \DAY MAX
     Route: 037
  9. COMPOUNDED BACLOFEN [Suspect]
     Active Substance: BACLOFEN
     Indication: LUMBAR RADICULOPATHY
     Dosage: 250.72 ?G, \DAY
     Route: 037
  10. MORPHINE [Suspect]
     Active Substance: MORPHINE
     Dosage: 1.253 MG, \DAY
     Route: 037
  11. COMPOUNDED BACLOFEN [Suspect]
     Active Substance: BACLOFEN
     Indication: LUMBAR RADICULOPATHY
     Dosage: 145 ?G, \DAY
     Route: 037
     Dates: start: 20160414, end: 20160714
  12. COMPOUNDED BACLOFEN [Suspect]
     Active Substance: BACLOFEN
     Indication: PAIN
     Dosage: 324.03 ?G, \DAY MAX
     Route: 037
  13. COMPOUNDED BACLOFEN [Suspect]
     Active Substance: BACLOFEN
     Dosage: 455.64 ?G, \DAY MAX
     Route: 037
     Dates: end: 20170720
  14. COMPOUNDED BACLOFEN [Suspect]
     Active Substance: BACLOFEN
     Dosage: 387.09 ?G, \DAY MAX
     Route: 037
     Dates: start: 20170720
  15. MORPHINE [Suspect]
     Active Substance: MORPHINE
     Dosage: 0.801 MG, \DAY
     Route: 037
     Dates: start: 20160714
  16. MORPHINE [Suspect]
     Active Substance: MORPHINE
     Dosage: 1.001 MG, \DAY
     Route: 037
     Dates: start: 20161013
  17. COMPOUNDED BACLOFEN [Suspect]
     Active Substance: BACLOFEN
     Indication: PAIN
     Dosage: 160.2 ?G, \DAY
     Route: 037
     Dates: start: 20160714
  18. COMPOUNDED BACLOFEN [Suspect]
     Active Substance: BACLOFEN
     Dosage: 273.46 ?G, \DAY
     Route: 037
  19. MORPHINE [Suspect]
     Active Substance: MORPHINE
     Dosage: 1.935 MG, \DAY MAX
     Route: 037
     Dates: end: 20170720
  20. COMPOUNDED BACLOFEN [Suspect]
     Active Substance: BACLOFEN
     Dosage: 270.07 ?G, \DAY
     Route: 037
     Dates: start: 20170720
  21. MORPHINE [Suspect]
     Active Substance: MORPHINE
     Dosage: 2.278 MG, \DAY MAX
     Route: 037
     Dates: end: 20170720
  22. MORPHINE [Suspect]
     Active Substance: MORPHINE
     Dosage: 1.350 MG, \DAY
     Route: 037
     Dates: start: 20170720

REACTIONS (6)
  - Sedation [Not Recovered/Not Resolved]
  - Implant site pain [Recovered/Resolved]
  - Tremor [Recovered/Resolved]
  - Pain [Recovered/Resolved]
  - Somnolence [Unknown]
  - Catheter site related reaction [Recovered/Resolved]

NARRATIVE: CASE EVENT DATE: 20160714
